FAERS Safety Report 25754973 (Version 1)
Quarter: 2025Q3

REPORT INFORMATION
  Report Type: Spontaneous
  Country: US (occurrence: US)
  Receive Date: 20250903
  Receipt Date: 20250903
  Transmission Date: 20251020
  Serious: Yes (Life-Threatening, Hospitalization, Other)
  Sender: ACCORD
  Company Number: US-MLMSERVICE-20240412-PI024392-00218-1

PATIENT
  Age: 65 Year
  Sex: Female

DRUGS (1)
  1. METHOTREXATE [Suspect]
     Active Substance: METHOTREXATE
     Indication: Product used for unknown indication

REACTIONS (4)
  - Pancytopenia [Unknown]
  - Inappropriate schedule of product administration [Unknown]
  - Hypoxic-ischaemic encephalopathy [Not Recovered/Not Resolved]
  - Acute kidney injury [Recovering/Resolving]
